FAERS Safety Report 9258297 (Version 1)
Quarter: 2013Q2

REPORT INFORMATION
  Report Type: Report from Study
  Country: GB (occurrence: GB)
  Receive Date: 20130426
  Receipt Date: 20130426
  Transmission Date: 20140414
  Serious: Yes (Other)
  Sender: FDA-Public Use
  Company Number: GB-PFIZER INC-2013121841

PATIENT
  Age: 64 Year
  Sex: Male
  Weight: 57.14 kg

DRUGS (2)
  1. CELECOXIB [Suspect]
     Indication: RHEUMATOID ARTHRITIS
     Dosage: 100 MG, ALTERNATE DAY
     Route: 048
     Dates: start: 20110615, end: 20130211
  2. SALAZOPYRIN [Suspect]
     Dosage: UNK
     Dates: end: 201302

REACTIONS (1)
  - Polyneuropathy [Recovering/Resolving]
